FAERS Safety Report 4330869-0 (Version None)
Quarter: 2004Q1

REPORT INFORMATION
  Report Type: 
  Country: None (occurrence: None)
  Receive Date: 20040331
  Receipt Date: 20040316
  Transmission Date: 20041129
  Serious: Yes (Hospitalization, Other)
  Sender: FDA-Public Use
  Company Number: USA040362077

PATIENT
  Age: 50 Year
  Sex: Female
  Weight: 55 kg

DRUGS (4)
  1. FORTEO [Suspect]
     Indication: OSTEOPOROSIS
     Dosage: 20 UG/1 DAY
     Dates: start: 20030301
  2. SYNTHROID [Concomitant]
  3. PAXIL [Concomitant]
  4. PREMARIN [Concomitant]

REACTIONS (7)
  - BENIGN NEOPLASM OF SPINAL CORD [None]
  - BURNING SENSATION [None]
  - HYPOAESTHESIA [None]
  - NERVE INJURY [None]
  - PAIN IN EXTREMITY [None]
  - PHARMACEUTICAL PRODUCT COMPLAINT [None]
  - POST PROCEDURAL COMPLICATION [None]
